FAERS Safety Report 6071344-5 (Version None)
Quarter: 2009Q1

REPORT INFORMATION
  Report Type: 
  Country: None (occurrence: None)
  Receive Date: 20090202
  Receipt Date: 20081103
  Transmission Date: 20090719
  Serious: Yes (Other)
  Sender: FDA-Public Use
  Company Number: 177793USA

PATIENT
  Age: 20 Year
  Sex: Female
  Weight: 83.4619 kg

DRUGS (4)
  1. DIVALPROEX SODIUM [Suspect]
     Indication: CONVULSION
     Dosage: 875 MG (125 MG, 7 IN 1 D), ORAL
     Route: 048
     Dates: start: 20080905, end: 20080901
  2. LEVETIRACETAM [Concomitant]
  3. METHYLPHENIDATE HCL [Concomitant]
  4. MODAFINIL [Concomitant]

REACTIONS (5)
  - DRUG INEFFECTIVE [None]
  - FEELING ABNORMAL [None]
  - GRAND MAL CONVULSION [None]
  - HEADACHE [None]
  - HYPERHIDROSIS [None]
